FAERS Safety Report 12183782 (Version 3)
Quarter: 2016Q2

REPORT INFORMATION
  Report Type: Spontaneous
  Country: JP (occurrence: JP)
  Receive Date: 20160316
  Receipt Date: 20160503
  Transmission Date: 20160815
  Serious: Yes (Other)
  Sender: FDA-Public Use
  Company Number: JP-SUN PHARMACEUTICAL INDUSTRIES LTD-2016RR-113234

PATIENT
  Age: 15 Year
  Sex: Male
  Weight: 60.1 kg

DRUGS (17)
  1. DEXAMETHASONE. [Concomitant]
     Active Substance: DEXAMETHASONE
     Indication: PRODUCT USED FOR UNKNOWN INDICATION
     Route: 042
  2. CYCLOPHOSPHAMIDE. [Suspect]
     Active Substance: CYCLOPHOSPHAMIDE
     Indication: NEOPLASM
     Dosage: 1200 MG/M2, UNK
     Route: 042
  3. WARFARIN [Interacting]
     Active Substance: WARFARIN
     Dosage: 2.5 MG, UNK
     Route: 065
  4. APREPITANT. [Concomitant]
     Active Substance: APREPITANT
     Indication: PROPHYLAXIS OF NAUSEA AND VOMITING
     Dosage: 125 MG ON DAY 1
     Route: 065
  5. WARFARIN [Interacting]
     Active Substance: WARFARIN
     Indication: CEREBRAL ARTERY OCCLUSION
     Dosage: 2 MG, DAILY
     Route: 048
  6. ONDANSETRON [Concomitant]
     Active Substance: ONDANSETRON
     Indication: PRODUCT USED FOR UNKNOWN INDICATION
     Route: 042
  7. WARFARIN [Interacting]
     Active Substance: WARFARIN
     Indication: CEREBRAL ARTERY OCCLUSION
     Dosage: 2 MG,
     Route: 065
  8. MESNA. [Concomitant]
     Active Substance: MESNA
     Dosage: ON DAYS 1 - 5 IN IE CHEMOTHERAPY
     Route: 065
  9. APREPITANT. [Concomitant]
     Active Substance: APREPITANT
     Dosage: 80 MG ON DAYS 2 AND 3
     Route: 065
  10. FLUCONAZOLE. [Concomitant]
     Active Substance: FLUCONAZOLE
     Indication: FUNGAL INFECTION
     Dosage: 100 MG, DAILY
     Route: 048
  11. DOXORUBICIN [Suspect]
     Active Substance: DOXORUBICIN
     Indication: NEOPLASM
     Dosage: 37.5 MG/M2, UNK
     Route: 065
  12. ETOPOSIDE. [Interacting]
     Active Substance: ETOPOSIDE
     Indication: NEOPLASM
     Dosage: 100 MG/M2, UNK
     Route: 042
  13. MESNA. [Concomitant]
     Active Substance: MESNA
     Indication: CYSTITIS HAEMORRHAGIC
     Dosage: ON DAY 1 IN VDC CHEMOTHERAPY
     Route: 065
  14. IFOSFAMIDE. [Interacting]
     Active Substance: IFOSFAMIDE
     Indication: NEOPLASM
     Dosage: 1800 MG/M2, UNK
     Route: 042
  15. VINCRISTINE [Suspect]
     Active Substance: VINCRISTINE
     Indication: NEOPLASM
     Dosage: 1.5 MG/M2, UNK
     Route: 065
  16. WARFARIN [Interacting]
     Active Substance: WARFARIN
     Dosage: 2.5 MG
     Route: 065
  17. FAMOTIDINE. [Concomitant]
     Active Substance: FAMOTIDINE
     Indication: PRODUCT USED FOR UNKNOWN INDICATION
     Route: 042

REACTIONS (6)
  - Drug interaction [Unknown]
  - International normalised ratio increased [Recovered/Resolved]
  - Cytopenia [Unknown]
  - Seizure [Unknown]
  - Cerebral artery occlusion [Unknown]
  - Depressed level of consciousness [Unknown]
